FAERS Safety Report 10067564 (Version 2)
Quarter: 2014Q2

REPORT INFORMATION
  Report Type: Spontaneous
  Country: US (occurrence: US)
  Receive Date: 20140409
  Receipt Date: 20140505
  Transmission Date: 20141212
  Serious: Yes (Hospitalization, Other)
  Sender: FDA-Public Use
  Company Number: US-JNJFOC-20140319454

PATIENT
  Age: 52 Year
  Sex: Male
  Weight: 74.84 kg

DRUGS (3)
  1. RISPERDAL [Suspect]
     Indication: SCHIZOPHRENIA, PARANOID TYPE
     Route: 048
  2. ACTOS [Suspect]
     Indication: DIABETES MELLITUS
     Route: 065
  3. CLOZAPINE [Suspect]
     Indication: SCHIZOPHRENIA, PARANOID TYPE
     Dosage: 100 MG DAILY AND 25 MG AT BEDTIME
     Route: 065

REACTIONS (6)
  - Condition aggravated [Unknown]
  - Aggression [Unknown]
  - Abnormal behaviour [Unknown]
  - Treatment noncompliance [Unknown]
  - Weight decreased [Unknown]
  - Anaemia [Unknown]
